FAERS Safety Report 4776940-0 (Version None)
Quarter: 2005Q3

REPORT INFORMATION
  Report Type: 
  Country: None (occurrence: None)
  Receive Date: 20050923
  Receipt Date: 20050826
  Transmission Date: 20060218
  Serious: No
  Sender: FDA-Public Use
  Company Number: PHBS2005JP12680

PATIENT
  Age: 52 Year
  Sex: 0

DRUGS (2)
  1. DIOVAN [Suspect]
     Indication: HYPERTENSION
     Dosage: 40 MG, QD
     Route: 048
     Dates: start: 20050608
  2. STAYBAN [Concomitant]
     Dosage: 80 MG, QD
     Dates: start: 20050729

REACTIONS (1)
  - SKIN EXFOLIATION [None]
